FAERS Safety Report 9663849 (Version 1)
Quarter: 2013Q4

REPORT INFORMATION
  Report Type: Report from Study
  Country: DE (occurrence: DE)
  Receive Date: 20131101
  Receipt Date: 20131101
  Transmission Date: 20140711
  Serious: Yes (Hospitalization)
  Sender: FDA-Public Use
  Company Number: DE-MPIJNJ-2013JNJ000774

PATIENT
  Sex: 0

DRUGS (3)
  1. VELCADE [Suspect]
     Indication: PLASMA CELL MYELOMA
     Dosage: 2.7 MG, UNK
     Route: 042
     Dates: start: 20110614, end: 20110815
  2. DEXAMETHASONE [Concomitant]
     Dosage: 40 MG, UNK
     Route: 048
     Dates: start: 20110614, end: 20110815
  3. CYCLOPHOSPHAMIDE [Concomitant]
     Dosage: 1870 MG, UNK
     Route: 042
     Dates: start: 20110614, end: 20110802

REACTIONS (1)
  - Hepatitis B [Recovered/Resolved]
